FAERS Safety Report 4387736-6 (Version None)
Quarter: 2004Q2

REPORT INFORMATION
  Report Type: 
  Country: None (occurrence: None)
  Receive Date: 20040630
  Receipt Date: 20040629
  Transmission Date: 20050107
  Serious: Yes (Hospitalization)
  Sender: FDA-Public Use
  Company Number: US-BRISTOL-MYERS SQUIBB COMPANY-12627881

PATIENT
  Age: 61 Year
  Sex: Female
  Weight: 141 kg

DRUGS (3)
  1. GLUCOPHAGE XR [Suspect]
     Indication: DIABETES MELLITUS
     Dosage: DURATION OF THERAPY:  7 OR 8 MONTHS
     Route: 048
  2. BLOOD PRESSURE MEDICATION [Concomitant]
  3. INHALERS [Concomitant]
     Indication: ASTHMA

REACTIONS (2)
  - ABDOMINAL PAIN [None]
  - CYSTITIS [None]
